FAERS Safety Report 12788366 (Version 1)
Quarter: 2016Q3

REPORT INFORMATION
  Report Type: Spontaneous
  Country: FR (occurrence: FR)
  Receive Date: 20160928
  Receipt Date: 20160928
  Transmission Date: 20161109
  Serious: Yes (Other)
  Sender: FDA-Public Use
  Company Number: FR-ASTRAZENECA-2016SF00578

PATIENT
  Age: 775 Month
  Sex: Female

DRUGS (2)
  1. XEROQUEL [Suspect]
     Active Substance: QUETIAPINE FUMARATE
     Indication: ANXIETY
     Dosage: 50 MG DAILY THEN INCREASED TO 300 MG PER DAY
     Route: 048
     Dates: start: 201501
  2. XEROQUEL [Suspect]
     Active Substance: QUETIAPINE FUMARATE
     Indication: ANXIETY
     Dosage: MAINTAINED AT 300 MG PER DAY THEN PROGRESSIVELY DECREASED TO 50 MG PER DAY
     Route: 048
     Dates: start: 201501

REACTIONS (4)
  - Off label use [Not Recovered/Not Resolved]
  - Product use issue [Not Recovered/Not Resolved]
  - Off label use [Not Recovered/Not Resolved]
  - Autoimmune thyroiditis [Not Recovered/Not Resolved]

NARRATIVE: CASE EVENT DATE: 201501
